FAERS Safety Report 9502549 (Version 4)
Quarter: 2013Q4

REPORT INFORMATION
  Report Type: Spontaneous
  Country: US (occurrence: US)
  Receive Date: 20130906
  Receipt Date: 20131111
  Transmission Date: 20140711
  Serious: Yes (Other)
  Sender: FDA-Public Use
  Company Number: US-JNJFOC-20130512990

PATIENT
  Sex: Male

DRUGS (3)
  1. RISPERDAL [Suspect]
     Indication: BIPOLAR DISORDER
     Route: 048
     Dates: start: 1995, end: 2012
  2. RISPERDAL [Suspect]
     Indication: SCHIZOPHRENIA
     Route: 048
     Dates: start: 1995, end: 2012
  3. ZOLOFT [Suspect]
     Indication: MENTAL DISORDER
     Route: 048

REACTIONS (5)
  - Tardive dyskinesia [Unknown]
  - Muscle twitching [Unknown]
  - Emotional distress [Unknown]
  - Obesity [Unknown]
  - Gynaecomastia [Unknown]
